FAERS Safety Report 9060395 (Version 1)
Quarter: 2013Q1

REPORT INFORMATION
  Report Type: Spontaneous
  Country: US (occurrence: US)
  Receive Date: 20130212
  Receipt Date: 20130212
  Transmission Date: 20140127
  Serious: Yes (Life-Threatening, Hospitalization)
  Sender: FDA-Public Use
  Company Number: US-ASTRAZENECA-2013SE09262

PATIENT
  Sex: 0

DRUGS (1)
  1. ARIMIDEX [Suspect]
     Route: 048

REACTIONS (12)
  - Suicide attempt [Unknown]
  - Depression [Unknown]
  - Metastatic neoplasm [Unknown]
  - Disease progression [Unknown]
  - Nausea [Unknown]
  - Headache [Unknown]
  - Lymphoedema [Unknown]
  - Asthenia [Unknown]
  - Fatigue [Unknown]
  - Renal impairment [Unknown]
  - Tooth fracture [Unknown]
  - Pallor [Unknown]
